FAERS Safety Report 8131415-6 (Version None)
Quarter: 2012Q1

REPORT INFORMATION
  Report Type: 
  Country: None (occurrence: None)
  Receive Date: 20120213
  Receipt Date: 20120131
  Transmission Date: 20120608
  Serious: Yes (Life-Threatening, Other)
  Sender: FDA-Public Use
  Company Number: JP-AMGEN-JPNSP2011053131

PATIENT
  Age: 78 Year
  Sex: Female
  Weight: 61 kg

DRUGS (19)
  1. ROMIPLATE [Suspect]
     Indication: IDIOPATHIC THROMBOCYTOPENIC PURPURA
     Dosage: 1 MUG/KG, UNK
     Route: 058
     Dates: start: 20111006, end: 20111006
  2. PREDNISOLONE [Concomitant]
     Dosage: DOSAGE DURING A DAY: 40MG/BODY
     Route: 065
     Dates: start: 20111008, end: 20111014
  3. MICARDIS [Concomitant]
     Indication: HYPERTENSION
     Dosage: UNCERTAINTY
     Route: 065
  4. PREDNISOLONE [Concomitant]
     Dosage: DOSAGE DURING A DAY: 45MG/BODY
     Route: 065
     Dates: start: 20111007, end: 20111007
  5. MAGMITT [Concomitant]
     Indication: CONSTIPATION
     Dosage: UNCERTAINTY
     Route: 065
  6. PURSENNID [Concomitant]
     Indication: CONSTIPATION
     Dosage: UNCERTAINTY
     Route: 065
  7. AMLODIPINE [Concomitant]
     Indication: HYPERTENSION
     Dosage: UNCERTAINTY
     Route: 065
  8. PREDNISOLONE [Concomitant]
     Dosage: DOSAGE DURING A DAY: 50MG/BODY
     Route: 065
     Dates: start: 20110930, end: 20111006
  9. WARFARIN SODIUM [Concomitant]
     Indication: MITRAL VALVE REPLACEMENT
     Dosage: UNCERTAINTY
     Route: 065
  10. TRANEXAMIC ACID [Concomitant]
     Indication: HAEMATOCHEZIA
     Dosage: UNCERTAINTY
     Route: 065
  11. PREDNISOLONE [Concomitant]
     Indication: IDIOPATHIC THROMBOCYTOPENIC PURPURA
     Dosage: DOSAGE DURING A DAY: 20MG/BODY
     Route: 048
     Dates: start: 20111028
  12. DOXAZOSIN MESYLATE [Concomitant]
     Indication: HYPERTENSION
     Dosage: UNCERTAINTY
     Route: 065
  13. PREDNISOLONE [Concomitant]
     Dosage: DOSAGE DURING A DAY: 25MG/BODY
     Route: 065
     Dates: start: 20111022, end: 20111027
  14. MUCOSTA [Concomitant]
     Indication: GASTRITIS
     Dosage: UNCERTAINTY
     Route: 065
  15. CEFAZOLIN SODIUM [Concomitant]
     Indication: HAEMATOCHEZIA
     Dosage: UNCERTAINTY
     Route: 065
  16. PREDNISOLONE [Concomitant]
     Indication: IDIOPATHIC THROMBOCYTOPENIC PURPURA
     Dosage: DOSAGE DURING A DAY: 60MG/BODY
     Route: 065
     Dates: start: 20110907, end: 20110922
  17. PREDNISOLONE [Concomitant]
     Dosage: DOSAGE DURING A DAY: 55MG/BODY
     Route: 065
     Dates: start: 20110923, end: 20110929
  18. PREDNISOLONE [Concomitant]
     Dosage: DOSAGE DURING A DAY: 30MG/BODY
     Route: 065
     Dates: start: 20111015, end: 20111021
  19. RABEPRAZOLE SODIUM [Concomitant]
     Indication: GASTROOESOPHAGEAL REFLUX DISEASE
     Dosage: UNCERTAINTY
     Route: 065

REACTIONS (4)
  - INFLUENZA LIKE ILLNESS [None]
  - SEPSIS [None]
  - INTESTINAL OBSTRUCTION [None]
  - PSEUDOMEMBRANOUS COLITIS [None]
